FAERS Safety Report 5412315-9 (Version None)
Quarter: 2007Q3

REPORT INFORMATION
  Report Type: 
  Country: None (occurrence: None)
  Receive Date: 20070713
  Receipt Date: 20070521
  Transmission Date: 20080115
  Serious: No
  Sender: FDA-Public Use
  Company Number: 2007SP001901

PATIENT
  Age: 88 Year
  Sex: Male
  Weight: 68.0396 kg

DRUGS (5)
  1. LUNESTA [Suspect]
     Indication: INSOMNIA
     Dosage: 2 MG;HS;ORAL
     Route: 048
     Dates: start: 20070401, end: 20070101
  2. SIMVASTATIN [Concomitant]
  3. LISINOPRIL [Concomitant]
  4. COREG [Concomitant]
  5. TAMSULOSIN HCL [Concomitant]

REACTIONS (2)
  - DRUG INEFFECTIVE [None]
  - MIDDLE INSOMNIA [None]
